FAERS Safety Report 6108158-3 (Version None)
Quarter: 2009Q1

REPORT INFORMATION
  Report Type: 
  Country: None (occurrence: None)
  Receive Date: 20090304
  Receipt Date: 20080829
  Transmission Date: 20090719
  Serious: Yes (Other)
  Sender: FDA-Public Use
  Company Number: US-001814

PATIENT
  Age: 5 Year
  Sex: Male
  Weight: 29.5 kg

DRUGS (1)
  1. ISOVUE-128 [Suspect]
     Indication: NECK MASS
     Dosage: 50ML QD INTRAVENOUS (NOT OTHERWISE SPECIFIED)
     Dates: start: 20080828, end: 20080828

REACTIONS (1)
  - HYPERSENSITIVITY [None]
